FAERS Safety Report 6668856-X (Version None)
Quarter: 2010Q2

REPORT INFORMATION
  Report Type: 
  Country: None (occurrence: None)
  Receive Date: 20100406
  Receipt Date: 20100324
  Transmission Date: 20101027
  Serious: Yes (Death, Hospitalization)
  Sender: FDA-Public Use
  Company Number: US-ROCHE-691565

PATIENT
  Sex: Male
  Weight: 69.4 kg

DRUGS (1)
  1. CAPECITABINE [Suspect]
     Dosage: STRENGTH: 500 MG AND 150 MG
     Route: 048
     Dates: start: 20091227, end: 20100117

REACTIONS (4)
  - DEATH [None]
  - EATING DISORDER [None]
  - STOMATITIS [None]
  - WEIGHT DECREASED [None]
